FAERS Safety Report 24054060 (Version 1)
Quarter: 2024Q3

REPORT INFORMATION
  Report Type: Report from Study
  Country: CA (occurrence: CA)
  Receive Date: 20240705
  Receipt Date: 20240705
  Transmission Date: 20241016
  Serious: Yes (Hospitalization)
  Sender: APOTEX
  Company Number: CA-APOTEX-2023AP012494

PATIENT
  Sex: Male

DRUGS (2)
  1. POMALIDOMIDE [Suspect]
     Active Substance: POMALIDOMIDE
     Indication: Plasma cell myeloma refractory
     Dosage: 1 DOSAGE FORM, QD FOR DAYS 1-21 OF 35-DAY CYCLE 21 DAYS
     Route: 048
     Dates: start: 20230718, end: 2024
  2. POMALIDOMIDE [Suspect]
     Active Substance: POMALIDOMIDE
     Dosage: 1 DOSAGE FORM, QD FOR DAYS 1-21 OF 35-DAY CYCLE 21 DAYS
     Route: 048
     Dates: start: 20240222, end: 202404

REACTIONS (5)
  - Fracture [Unknown]
  - Off label use [Unknown]
  - Treatment delayed [Unknown]
  - Adverse drug reaction [Unknown]
  - Mass [Unknown]

NARRATIVE: CASE EVENT DATE: 20230101
